FAERS Safety Report 13165518 (Version 3)
Quarter: 2017Q2

REPORT INFORMATION
  Report Type: Spontaneous
  Country: US (occurrence: US)
  Receive Date: 20170131
  Receipt Date: 20170403
  Transmission Date: 20170830
  Serious: No
  Sender: FDA-Public Use
  Company Number: US-TAIHO ONCOLOGY INC-EU-2017-00120

PATIENT
  Age: 55 Year
  Sex: Male
  Weight: 72.19 kg

DRUGS (11)
  1. ABILIFY [Concomitant]
     Active Substance: ARIPIPRAZOLE
     Route: 048
  2. LONSURF [Suspect]
     Active Substance: TIPIRACIL HYDROCHLORIDE\TRIFLURIDINE
     Indication: COLON CANCER
  3. IMODIUM [Concomitant]
     Active Substance: LOPERAMIDE HYDROCHLORIDE
     Dosage: 2 MG EVERY 2 HOURS UNTIL 12 HOURS WITHOUT DIARRHEA
  4. SENOKOT [Concomitant]
     Active Substance: SENNOSIDES
     Dosage: 1 TABLET AS DIRECTED
     Route: 048
  5. ZOFRAN [Concomitant]
     Active Substance: ONDANSETRON HYDROCHLORIDE
     Indication: NAUSEA
     Route: 048
  6. CLEOCIN T [Concomitant]
     Active Substance: CLINDAMYCIN PHOSPHATE
     Dosage: 1 APPLICATION 2 TIMES DAILY
     Route: 061
  7. VIBRAMYCIN [Concomitant]
     Active Substance: DOXYCYCLINE
     Route: 048
  8. IMODIUM [Concomitant]
     Active Substance: LOPERAMIDE HYDROCHLORIDE
     Indication: DIARRHOEA
     Dosage: 4MG AFTER FIRST BOWEL MOVEMEMNT
     Route: 048
  9. MAG-DELAY [Concomitant]
     Route: 048
  10. LONSURF [Suspect]
     Active Substance: TIPIRACIL HYDROCHLORIDE\TRIFLURIDINE
     Indication: COLORECTAL CANCER METASTATIC
     Dosage: CYCLES 1-2
     Route: 048
     Dates: start: 2016, end: 201701
  11. ZOFRAN [Concomitant]
     Active Substance: ONDANSETRON HYDROCHLORIDE
     Indication: VOMITING

REACTIONS (6)
  - Leukopenia [Recovered/Resolved]
  - Folliculitis [Unknown]
  - Disease progression [Not Recovered/Not Resolved]
  - Rash [Not Recovered/Not Resolved]
  - Neutropenia [Recovered/Resolved]
  - Nausea [Recovered/Resolved]

NARRATIVE: CASE EVENT DATE: 20170118
